FAERS Safety Report 24994960 (Version 1)
Quarter: 2025Q1

REPORT INFORMATION
  Report Type: Spontaneous
  Country: US (occurrence: None)
  Receive Date: 20250220
  Receipt Date: 20250220
  Transmission Date: 20250409
  Serious: Yes (Death)
  Sender: FDA-CTU
  Company Number: None

PATIENT
  Age: 57 Year
  Sex: Male

DRUGS (11)
  1. XPHOZAH [Suspect]
     Active Substance: TENAPANOR HYDROCHLORIDE
     Dates: start: 20240515, end: 20250219
  2. AMLODIPINE [Concomitant]
     Active Substance: AMLODIPINE BESYLATE
     Dates: start: 20250220, end: 20250220
  3. ARANESP [Concomitant]
     Active Substance: DARBEPOETIN ALFA
     Dates: start: 20250220, end: 20250220
  4. ASPIRIN [Concomitant]
     Active Substance: ASPIRIN
     Dates: start: 20250220, end: 20250220
  5. CALCIUM CARBONATE 500MG [Concomitant]
     Active Substance: CALCIUM CARBONATE
     Dates: start: 20250220, end: 20250220
  6. dialyvite 800mcg [Concomitant]
     Dates: start: 20250220, end: 20250220
  7. DIPHENHYDRAMINE [Concomitant]
     Active Substance: DIPHENHYDRAMINE
     Dates: start: 20250220, end: 20250220
  8. divalproex DR 125mg [Concomitant]
     Dates: start: 20250220, end: 20250220
  9. GABAPENTIN [Concomitant]
     Active Substance: GABAPENTIN
     Dates: start: 20250220, end: 20250220
  10. HYDRALAZINE [Concomitant]
     Active Substance: HYDRALAZINE HYDROCHLORIDE
     Dates: start: 20250220, end: 20250220
  11. metoprolol Succ 100mg [Concomitant]
     Dates: start: 20250220, end: 20250220

REACTIONS (1)
  - Death [None]

NARRATIVE: CASE EVENT DATE: 20250220
